FAERS Safety Report 23423270 (Version 2)
Quarter: 2024Q1

REPORT INFORMATION
  Report Type: Spontaneous
  Country: CZ (occurrence: CZ)
  Receive Date: 20240119
  Receipt Date: 20240130
  Transmission Date: 20240409
  Serious: Yes (Other)
  Sender: FDA-Public Use
  Company Number: CZ-002147023-NVSC2024CZ011416

PATIENT
  Age: 3 Year
  Sex: Female
  Weight: 17 kg

DRUGS (1)
  1. KYMRIAH [Suspect]
     Active Substance: TISAGENLECLEUCEL
     Indication: Acute lymphocytic leukaemia
     Dosage: UNK, ONCE/SINGLE
     Route: 065
     Dates: start: 20201223, end: 20201223

REACTIONS (5)
  - Cytokine release syndrome [Unknown]
  - Pyrexia [Unknown]
  - Capillary leak syndrome [Unknown]
  - Leukaemic infiltration extramedullary [Unknown]
  - B-lymphocyte count decreased [Unknown]
